FAERS Safety Report 6859998-4 (Version None)
Quarter: 2010Q3

REPORT INFORMATION
  Report Type: 
  Country: None (occurrence: None)
  Receive Date: 20100720
  Receipt Date: 20100713
  Transmission Date: 20110219
  Serious: Yes (Other)
  Sender: FDA-Public Use
  Company Number: NO-PFIZER INC-2010087525

PATIENT
  Age: 32 Year
  Sex: Male

DRUGS (2)
  1. GENOTROPIN [Suspect]
     Dosage: MAX 3.6 IU, SOMETIMES A LITTLE MORE
  2. THYROXIN T3 [Concomitant]
     Dosage: UNK

REACTIONS (5)
  - HEADACHE [None]
  - NAUSEA [None]
  - PUPILS UNEQUAL [None]
  - VISUAL IMPAIRMENT [None]
  - VOMITING [None]
